FAERS Safety Report 8007887-4 (Version None)
Quarter: 2011Q4

REPORT INFORMATION
  Report Type: 
  Country: None (occurrence: None)
  Receive Date: 20111222
  Receipt Date: 20111222
  Transmission Date: 20120403
  Serious: No
  Sender: FDA-Public Use
  Company Number: None

PATIENT
  Age: 57 Year
  Sex: Female
  Weight: 127.0072 kg

DRUGS (13)
  1. CLINDAMYCIN [Suspect]
     Indication: DENTAL CARE
     Dosage: 300MG 2 TBS
     Dates: start: 20111128
  2. CLINDAMYCIN [Suspect]
     Indication: TOOTH REPAIR
     Dosage: 300MG 2 TBS
     Dates: start: 20111128
  3. AMBIEN [Concomitant]
  4. NEXIUM [Concomitant]
  5. ASPIRIN [Concomitant]
  6. IMDUR [Concomitant]
  7. LEVOTHYROXINE SODIUM [Concomitant]
  8. BACLOFEN [Concomitant]
  9. AMLODIPINE [Concomitant]
  10. RANEXA [Concomitant]
  11. SYNTHROID [Concomitant]
  12. LISINOPRIL [Concomitant]
  13. PRAVASTATIN [Concomitant]

REACTIONS (1)
  - BURN OESOPHAGEAL [None]
